FAERS Safety Report 5413486-0 (Version None)
Quarter: 2007Q3

REPORT INFORMATION
  Report Type: 
  Country: None (occurrence: None)
  Receive Date: 20070814
  Receipt Date: 20070809
  Transmission Date: 20080115
  Serious: Yes (Death, Life-Threatening)
  Sender: FDA-Public Use
  Company Number: DE-BAYER-200710813BVD

PATIENT
  Age: 69 Year
  Sex: Male
  Weight: 81 kg

DRUGS (2)
  1. CIPROFLOXACIN HCL [Suspect]
     Indication: PROPHYLAXIS
     Dosage: AS USED: 500 MG
     Route: 048
     Dates: start: 20070619, end: 20070622
  2. COAPROVEL [Concomitant]

REACTIONS (1)
  - COMPLETED SUICIDE [None]
